FAERS Safety Report 4442369-8 (Version None)
Quarter: 2004Q3

REPORT INFORMATION
  Report Type: 
  Country: None (occurrence: None)
  Receive Date: 20040903
  Receipt Date: 20040720
  Transmission Date: 20050211
  Serious: Yes (Other)
  Sender: FDA-Public Use
  Company Number: 2004UW15075

PATIENT
  Age: 69 Year
  Sex: Male
  Weight: 102.9665 kg

DRUGS (2)
  1. CRESTOR [Suspect]
  2. NORVASC [Concomitant]

REACTIONS (2)
  - MUSCULOSKELETAL STIFFNESS [None]
  - MYALGIA [None]
